FAERS Safety Report 19421305 (Version 2)
Quarter: 2024Q2

REPORT INFORMATION
  Report Type: Spontaneous
  Country: US (occurrence: None)
  Receive Date: 20210616
  Receipt Date: 20240408
  Transmission Date: 20240715
  Serious: Yes (Hospitalization, Other)
  Sender: FDA-Public Use
  Company Number: US-ROCHE-2848263

PATIENT
  Age: 74 Year
  Sex: Female

DRUGS (2)
  1. ESBRIET [Suspect]
     Active Substance: PIRFENIDONE
     Indication: Idiopathic pulmonary fibrosis
     Route: 048
  2. OFEV [Suspect]
     Active Substance: NINTEDANIB
     Indication: Idiopathic pulmonary fibrosis
     Route: 048
     Dates: start: 20230627, end: 2023

REACTIONS (26)
  - White blood cell count increased [Unknown]
  - Carotid pulse increased [Unknown]
  - Headache [Unknown]
  - Pharyngeal disorder [Unknown]
  - Pain [Unknown]
  - Blood glucose decreased [Unknown]
  - Fall [Unknown]
  - Diabetic coma [Unknown]
  - Coma [Unknown]
  - Renal cell carcinoma [Unknown]
  - Atrial fibrillation [Unknown]
  - Cerebrovascular accident [Unknown]
  - Cardiac ventricular thrombosis [Unknown]
  - Blood pressure decreased [Unknown]
  - Vein discolouration [Unknown]
  - Arthralgia [Unknown]
  - Heart rate decreased [Unknown]
  - Chest pain [Unknown]
  - Abdominal discomfort [Unknown]
  - Pain in extremity [Unknown]
  - Neck pain [Unknown]
  - Abdominal pain [Unknown]
  - Amnesia [Unknown]
  - Renal mass [Unknown]
  - Abdominal pain upper [Unknown]
  - Fatigue [Unknown]

NARRATIVE: CASE EVENT DATE: 20230801
